FAERS Safety Report 6969215-2 (Version None)
Quarter: 2010Q3

REPORT INFORMATION
  Report Type: 
  Country: None (occurrence: None)
  Receive Date: 20100907
  Receipt Date: 20100831
  Transmission Date: 20110219
  Serious: Yes (Hospitalization)
  Sender: FDA-Public Use
  Company Number: PHHO2010US01821

PATIENT
  Sex: Male
  Weight: 117.3 kg

DRUGS (21)
  1. AFINITOR [Suspect]
     Indication: SARCOMA
     Dosage: 10 MG, EVERY DAY
     Route: 048
     Dates: start: 20090105, end: 20100323
  2. ALLOPURINOL [Concomitant]
  3. CLOBETASOL PROPIONATE [Concomitant]
  4. COLCHICINE [Concomitant]
  5. DEXAMETHASONE [Concomitant]
  6. DOCUSATE SODIUM W/SENNA [Concomitant]
  7. EFFEXOR XR [Concomitant]
  8. FALICARD - SLOW RELEASE [Concomitant]
  9. DIPHENHYDRAMINE, COMBINATIONS [Concomitant]
  10. METOPROLOL TARTRATE [Concomitant]
  11. MULTI-VITAMINS [Concomitant]
  12. NEURONTIN [Concomitant]
  13. NEXIUM [Concomitant]
  14. FOLGARD [Concomitant]
  15. MAALOX [Concomitant]
  16. ASPIRIN [Concomitant]
  17. ATIVAN [Concomitant]
  18. CALCIUM [Concomitant]
  19. FENTANYL CITRATE [Concomitant]
  20. POTASSIUM CITRATE [Concomitant]
  21. ZOCOR [Concomitant]

REACTIONS (13)
  - ABDOMINAL PAIN [None]
  - DYSPNOEA [None]
  - FAECES DISCOLOURED [None]
  - GASTRECTOMY [None]
  - GASTROINTESTINAL HAEMORRHAGE [None]
  - GASTROINTESTINAL NECROSIS [None]
  - HAEMATOCRIT DECREASED [None]
  - LUMBAR RADICULOPATHY [None]
  - MALIGNANT NEOPLASM PROGRESSION [None]
  - METASTASES TO SPINE [None]
  - METASTASES TO STOMACH [None]
  - ODYNOPHAGIA [None]
  - RECTAL HAEMORRHAGE [None]
